FAERS Safety Report 8606673-1 (Version None)
Quarter: 2012Q3

REPORT INFORMATION
  Report Type: 
  Country: None (occurrence: None)
  Receive Date: 20120820
  Receipt Date: 20120813
  Transmission Date: 20120928
  Serious: Yes (Life-Threatening, Hospitalization, Other)
  Sender: FDA-Public Use
  Company Number: US-ELI_LILLY_AND_COMPANY-US201206003093

PATIENT
  Sex: Female
  Weight: 56 kg

DRUGS (7)
  1. IPRATROPIUM BROMIDE [Concomitant]
  2. JANUVIA [Concomitant]
  3. HUMULIN R [Suspect]
     Dosage: 20 U, SINGLE
     Route: 058
     Dates: start: 20120605
  4. HUMALOG [Suspect]
     Dosage: 12 U, SINGLE
     Dates: start: 20120605, end: 20120605
  5. GLIPIZIDE [Concomitant]
  6. PREDNISONE [Concomitant]
  7. HUMULIN R [Suspect]
     Indication: BLOOD GLUCOSE INCREASED
     Dosage: 5 U, SINGLE
     Route: 042
     Dates: start: 20120605

REACTIONS (4)
  - HYPOGLYCAEMIC UNCONSCIOUSNESS [None]
  - PNEUMONIA [None]
  - BLOOD GLUCOSE INCREASED [None]
  - CARDIO-RESPIRATORY ARREST [None]
